FAERS Safety Report 7081714-4 (Version None)
Quarter: 2010Q4

REPORT INFORMATION
  Report Type: 
  Country: None (occurrence: None)
  Receive Date: 20101025
  Receipt Date: 20101011
  Transmission Date: 20110411
  Serious: Yes (Hospitalization)
  Sender: FDA-Public Use
  Company Number: MCN 015331/AE 2010-076

PATIENT
  Age: 39 Year
  Sex: Female

DRUGS (8)
  1. PRIALT [Suspect]
     Indication: PAIN
     Dosage: 0.25 UG/HOUR INTRATHECAL
     Route: 037
     Dates: start: 20090101, end: 20100101
  2. LEVOTHYROXINE SODIUM [Concomitant]
  3. PANTOPRAZOLE SODIUM [Concomitant]
  4. ARCOXIA [Concomitant]
  5. CYMBALTA [Concomitant]
  6. LYRICA [Concomitant]
  7. KATADOLON [Concomitant]
  8. FLUCTINE [Concomitant]

REACTIONS (6)
  - AMNESIA [None]
  - DEPRESSION [None]
  - HALLUCINATION, AUDITORY [None]
  - ROAD TRAFFIC ACCIDENT [None]
  - SPEECH DISORDER [None]
  - SUICIDAL IDEATION [None]
